FAERS Safety Report 4318935-7 (Version None)
Quarter: 2004Q1

REPORT INFORMATION
  Report Type: 
  Country: None (occurrence: None)
  Receive Date: 20040316
  Receipt Date: 20040304
  Transmission Date: 20041129
  Serious: Yes (Death)
  Sender: FDA-Public Use
  Company Number: HQWYE571804MAR04

PATIENT
  Age: 77 Year
  Sex: Female

DRUGS (14)
  1. CORDARONE [Suspect]
     Dosage: 200 MG
     Route: 048
     Dates: start: 20031206, end: 20040114
  2. ADANCOR (NICORANDIL, ) [Suspect]
     Route: 048
     Dates: end: 20040116
  3. GLEEVEC [Suspect]
     Indication: GASTRIC CANCER
     Dosage: 400 MG 1X PER 1 DAY
     Route: 048
     Dates: start: 20031205, end: 20040112
  4. MEDIATENSYL (URAPIDIL, ) [Suspect]
     Route: 048
     Dates: end: 20040116
  5. STABLON (TIANEPTINE, TABLET) [Concomitant]
     Dosage: 12.5 MG
     Route: 048
     Dates: end: 20040116
  6. LASIX [Concomitant]
  7. FERROUS SULFATE TAB [Concomitant]
  8. UMULINE (INSULIN HUMAN ZINC SUSPENSION) [Concomitant]
  9. FRAXIPARIN (HEPARIN-FRACTION, CALCIUM SALT) [Concomitant]
  10. NITROGLYCERIN [Concomitant]
  11. GLUCOR (ACARBOSE) [Concomitant]
  12. MOSCONTIN (MORPHINE SULFATE) [Concomitant]
  13. BACICOLINE (CHLORAMPHENICOL/COLISTIN MESILATE SODIUM/HYDROCORTISONE AC [Concomitant]
  14. TOBREX (TOBRAMYCIN SULFATE) [Concomitant]

REACTIONS (1)
  - TOXIC EPIDERMAL NECROLYSIS [None]
